FAERS Safety Report 7164245-2 (Version None)
Quarter: 2010Q4

REPORT INFORMATION
  Report Type: 
  Country: None (occurrence: None)
  Receive Date: 20101215
  Receipt Date: 20101201
  Transmission Date: 20110411
  Serious: Yes (Hospitalization, Other)
  Sender: FDA-Public Use
  Company Number: US-ROCHE-690623

PATIENT
  Sex: Male
  Weight: 53.3 kg

DRUGS (2)
  1. ACCUTANE [Suspect]
     Indication: ACNE
     Route: 048
     Dates: start: 20020918, end: 20030101
  2. AMNESTEEM [Suspect]
     Indication: ACNE
     Route: 048
     Dates: start: 20030120, end: 20030201

REACTIONS (46)
  - ANAEMIA [None]
  - ANGER [None]
  - ANHEDONIA [None]
  - ANTISOCIAL BEHAVIOUR [None]
  - ASTHENIA [None]
  - BLOOD POTASSIUM DECREASED [None]
  - CLOSTRIDIUM TEST POSITIVE [None]
  - COLITIS [None]
  - COLITIS ULCERATIVE [None]
  - DECREASED APPETITE [None]
  - DECREASED INTEREST [None]
  - DEPERSONALISATION [None]
  - DEPRESSION [None]
  - DEREALISATION [None]
  - DERMATITIS [None]
  - DISTURBANCE IN ATTENTION [None]
  - DRUG HYPERSENSITIVITY [None]
  - DRUG RESISTANCE [None]
  - ENTERITIS [None]
  - ENTEROCOLITIS INFECTIOUS [None]
  - FATIGUE [None]
  - FEAR [None]
  - FEELING GUILTY [None]
  - FEELING OF DESPAIR [None]
  - FEELINGS OF WORTHLESSNESS [None]
  - FLAT AFFECT [None]
  - FUNGAL INFECTION [None]
  - GASTROOESOPHAGEAL REFLUX DISEASE [None]
  - INCREASED APPETITE [None]
  - INFLAMMATORY BOWEL DISEASE [None]
  - IRRITABILITY [None]
  - LIBIDO DECREASED [None]
  - MENTAL DISORDER [None]
  - MENTAL STATUS CHANGES [None]
  - MOOD SWINGS [None]
  - NEPHROLITHIASIS [None]
  - PAIN IN EXTREMITY [None]
  - POSTOPERATIVE ILEUS [None]
  - POUCHITIS [None]
  - PROCTOCOLITIS [None]
  - PSEUDOMEMBRANOUS COLITIS [None]
  - SELF ESTEEM DECREASED [None]
  - SUICIDAL IDEATION [None]
  - THINKING ABNORMAL [None]
  - WEIGHT DECREASED [None]
  - WEIGHT INCREASED [None]
